FAERS Safety Report 14280413 (Version 2)
Quarter: 2017Q4

REPORT INFORMATION
  Report Type: Spontaneous
  Country: ES (occurrence: ES)
  Receive Date: 20171212
  Receipt Date: 20171226
  Transmission Date: 20180321
  Serious: Yes (Other)
  Sender: FDA-Public Use
  Company Number: ES-ALLERGAN-1770108US

PATIENT
  Age: 63 Year
  Sex: Male

DRUGS (2)
  1. OZURDEX [Suspect]
     Active Substance: DEXAMETHASONE
     Indication: MACULAR OEDEMA
     Dosage: 0.7 MG, SINGLE
     Route: 031
  2. OZURDEX [Suspect]
     Active Substance: DEXAMETHASONE
     Indication: RETINAL HAEMORRHAGE
     Dosage: 0.7 MG, SINGLE
     Route: 031

REACTIONS (10)
  - Procedural complication [Unknown]
  - Vitreous floaters [Unknown]
  - Posterior capsule rupture [Unknown]
  - Visual acuity reduced [Unknown]
  - Device deployment issue [Unknown]
  - Off label use [Unknown]
  - Complication of device insertion [Unknown]
  - Intraocular pressure increased [Recovering/Resolving]
  - Cataract [Unknown]
  - Device material issue [Unknown]
